APPROVED DRUG PRODUCT: ISOSORBIDE DINITRATE
Active Ingredient: ISOSORBIDE DINITRATE
Strength: 10MG
Dosage Form/Route: TABLET;ORAL
Application: A215723 | Product #002 | TE Code: AB
Applicant: RUBICON RESEARCH PRIVATE LTD
Approved: Jul 8, 2022 | RLD: No | RS: No | Type: RX